FAERS Safety Report 6085344-2 (Version None)
Quarter: 2009Q1

REPORT INFORMATION
  Report Type: 
  Country: None (occurrence: None)
  Receive Date: 20090220
  Receipt Date: 20090210
  Transmission Date: 20090719
  Serious: Yes (Hospitalization)
  Sender: FDA-Public Use
  Company Number: FR-PFIZER INC-2009169849

PATIENT

DRUGS (5)
  1. TRIFLUCAN [Suspect]
     Indication: CANDIDIASIS
     Route: 042
     Dates: start: 20080520, end: 20080529
  2. TIENAM [Concomitant]
     Dates: end: 20080523
  3. GENTAMICIN [Concomitant]
     Dates: end: 20080521
  4. CANCIDAS [Concomitant]
     Dates: start: 20080509, end: 20080520
  5. VANCOMYCIN [Concomitant]

REACTIONS (1)
  - ALTERED STATE OF CONSCIOUSNESS [None]
